APPROVED DRUG PRODUCT: ARIPIPRAZOLE
Active Ingredient: ARIPIPRAZOLE
Strength: 10MG
Dosage Form/Route: TABLET, ORALLY DISINTEGRATING;ORAL
Application: A090165 | Product #001 | TE Code: AB
Applicant: SQUARE PHARMACEUTICALS LTD
Approved: Aug 28, 2018 | RLD: No | RS: No | Type: RX